FAERS Safety Report 15157360 (Version 2)
Quarter: 2018Q3

REPORT INFORMATION
  Report Type: Spontaneous
  Country: US (occurrence: US)
  Receive Date: 20180718
  Receipt Date: 20180723
  Transmission Date: 20181010
  Serious: No
  Sender: FDA-Public Use
  Company Number: US-009507513-1807USA000698

PATIENT
  Age: 74 Year
  Sex: Male

DRUGS (2)
  1. PRINIVIL [Suspect]
     Active Substance: LISINOPRIL
     Indication: BLOOD PRESSURE ABNORMAL
     Dosage: 10 MG BY MOUTH ONE TABLET ONCE A DAY IN THE MORNING
     Route: 048
     Dates: start: 201804, end: 20180616
  2. INLYTA [Suspect]
     Active Substance: AXITINIB
     Indication: LUNG CANCER METASTATIC
     Dosage: SMG TABLET BY MOUTH (SWALLOW WHOLE) ONE IN THE MORNING AND ONE IN THE EVENING
     Route: 048
     Dates: start: 20180415

REACTIONS (3)
  - Cough [Recovering/Resolving]
  - Diarrhoea [Not Recovered/Not Resolved]
  - Asthenia [Not Recovered/Not Resolved]

NARRATIVE: CASE EVENT DATE: 2018
